FAERS Safety Report 14826660 (Version 2)
Quarter: 2018Q2

REPORT INFORMATION
  Report Type: Spontaneous
  Country: US (occurrence: US)
  Receive Date: 20180430
  Receipt Date: 20180508
  Transmission Date: 20180711
  Serious: Yes (Other)
  Sender: FDA-Public Use
  Company Number: US-BAYER-2018-080548

PATIENT
  Sex: Female

DRUGS (2)
  1. MAGNEVIST [Suspect]
     Active Substance: GADOPENTETATE DIMEGLUMINE
     Indication: ANGIOGRAM
  2. MAGNEVIST [Suspect]
     Active Substance: GADOPENTETATE DIMEGLUMINE
     Indication: NUCLEAR MAGNETIC RESONANCE IMAGING
     Dosage: UNK, ONCE
     Route: 042

REACTIONS (24)
  - Gastrointestinal haemorrhage [None]
  - Lymphadenopathy [None]
  - Bradycardia [None]
  - Arthritis [None]
  - Central nervous system lesion [None]
  - Gastritis [None]
  - Hyperlipidaemia [None]
  - Skin disorder [None]
  - Abdominal adhesions [None]
  - Gastric polyps [None]
  - Pulmonary granuloma [None]
  - Blood pressure abnormal [None]
  - Gadolinium deposition disease [None]
  - Ileus [None]
  - Thyroid mass [None]
  - Spinal disorder [None]
  - Muscle contractions involuntary [None]
  - Pain [None]
  - Anaemia [None]
  - Cognitive disorder [None]
  - Polyneuropathy [None]
  - Endometrial thickening [None]
  - Muscular weakness [None]
  - Fatigue [None]
